FAERS Safety Report 8014521-6 (Version None)
Quarter: 2011Q4

REPORT INFORMATION
  Report Type: 
  Country: None (occurrence: None)
  Receive Date: 20111229
  Receipt Date: 20111229
  Transmission Date: 20120403
  Serious: Yes (Death, Other)
  Sender: FDA-Public Use
  Company Number: US-B.I. PHARMACEUTICALS,INC./RIDGEFIELD-2011-BP-28926BP

PATIENT
  Sex: Male

DRUGS (4)
  1. FOLIC ACID [Concomitant]
  2. SOTALOL HCL [Concomitant]
     Indication: ATRIAL FIBRILLATION
  3. DIGOXIN [Concomitant]
     Indication: ATRIAL FIBRILLATION
  4. PRADAXA [Suspect]
     Indication: ATRIAL FIBRILLATION
     Dosage: 300 MG
     Route: 048
     Dates: start: 20111019, end: 20111107

REACTIONS (1)
  - NEOPLASM MALIGNANT [None]
